FAERS Safety Report 15344338 (Version 1)
Quarter: 2018Q3

REPORT INFORMATION
  Report Type: Spontaneous
  Country: US (occurrence: US)
  Receive Date: 20180903
  Receipt Date: 20180903
  Transmission Date: 20181010
  Serious: Yes (Other)
  Sender: FDA-Public Use
  Company Number: US-SA-2018SA164277

PATIENT
  Age: 55 Year
  Sex: Female

DRUGS (12)
  1. TYLENOL [Concomitant]
     Active Substance: ACETAMINOPHEN
  2. ADRIAMYCIN [Concomitant]
     Active Substance: DOXORUBICIN HYDROCHLORIDE
  3. METOPROLOL. [Concomitant]
     Active Substance: METOPROLOL
  4. TAXOTERE [Suspect]
     Active Substance: DOCETAXEL
     Indication: BREAST CANCER FEMALE
     Dosage: UNK
     Route: 042
     Dates: start: 20090813, end: 20090813
  5. TAXOTERE [Suspect]
     Active Substance: DOCETAXEL
     Dosage: 150 UNK, UNK
     Route: 042
     Dates: start: 20090924, end: 20090924
  6. FUROSEMIDE. [Concomitant]
     Active Substance: FUROSEMIDE
  7. BENADRYL [Concomitant]
     Active Substance: DIPHENHYDRAMINE HYDROCHLORIDE
  8. HERCEPTIN [Concomitant]
     Active Substance: TRASTUZUMAB
  9. EZETIMIBE. [Concomitant]
     Active Substance: EZETIMIBE
  10. NEOSAR [Concomitant]
     Active Substance: CYCLOPHOSPHAMIDE
  11. MELOXICAM. [Concomitant]
     Active Substance: MELOXICAM
  12. ALOXI [Concomitant]
     Active Substance: PALONOSETRON HYDROCHLORIDE

REACTIONS (2)
  - Alopecia [Recovering/Resolving]
  - Psychological trauma [Unknown]
